FAERS Safety Report 17449954 (Version 4)
Quarter: 2020Q3

REPORT INFORMATION
  Report Type: Spontaneous
  Country: None (occurrence: US)
  Receive Date: 20200224
  Receipt Date: 20200708
  Transmission Date: 20201102
  Serious: Yes (Life-Threatening, Hospitalization, Other)
  Sender: FDA-Public Use
  Company Number: US-SA-2020SA042884

PATIENT

DRUGS (6)
  1. LEUCOVORIN [FOLINIC ACID] [Suspect]
     Active Substance: LEUCOVORIN
     Indication: ADENOCARCINOMA GASTRIC
  2. 5?FLUOROURACIL [FLUOROURACIL] [Suspect]
     Active Substance: FLUOROURACIL
     Indication: ADENOCARCINOMA GASTRIC
     Dosage: UNK UNK, QCY
     Route: 065
  3. 5?FLUOROURACIL [FLUOROURACIL] [Suspect]
     Active Substance: FLUOROURACIL
     Indication: ADENOCARCINOMA GASTRIC
  4. OXALIPLATIN. [Suspect]
     Active Substance: OXALIPLATIN
     Indication: ADENOCARCINOMA GASTRIC
  5. OXALIPLATIN. [Suspect]
     Active Substance: OXALIPLATIN
     Indication: ADENOCARCINOMA GASTRIC
     Dosage: UNK UNK, QCY
  6. LEUCOVORIN [FOLINIC ACID] [Suspect]
     Active Substance: LEUCOVORIN
     Indication: ADENOCARCINOMA GASTRIC
     Dosage: UNK UNK, QCY
     Route: 065

REACTIONS (17)
  - Confusional state [Recovered/Resolved]
  - Somnolence [Recovered/Resolved]
  - Haemoglobin decreased [Recovered/Resolved]
  - Blood albumin decreased [Recovered/Resolved]
  - Tumour lysis syndrome [Recovered/Resolved]
  - Dysarthria [Recovered/Resolved]
  - Blood creatinine increased [Recovered/Resolved]
  - Blood phosphorus increased [Recovered/Resolved]
  - Blood uric acid increased [Recovered/Resolved]
  - Dyskinesia [Recovered/Resolved]
  - Blood alkaline phosphatase increased [Recovered/Resolved]
  - Alanine aminotransferase increased [Recovered/Resolved]
  - Cerebral disorder [Recovered/Resolved]
  - Mental status changes [Recovered/Resolved]
  - Electrolyte imbalance [Recovered/Resolved]
  - Uraemic encephalopathy [Recovered/Resolved]
  - Disorientation [Recovered/Resolved]
